FAERS Safety Report 4462410-6 (Version None)
Quarter: 2004Q3

REPORT INFORMATION
  Report Type: 
  Country: None (occurrence: None)
  Receive Date: 20040924
  Receipt Date: 20040918
  Transmission Date: 20050211
  Serious: Yes (Hospitalization)
  Sender: FDA-Public Use
  Company Number: GBWYE990920AUG04

PATIENT
  Age: 53 Year
  Sex: Male

DRUGS (1)
  1. ADVIL [Suspect]
     Dosage: 400 MG 3 X 1 DAY
     Route: 048
     Dates: start: 20040707, end: 20040728

REACTIONS (4)
  - GASTRIC ULCER HELICOBACTER [None]
  - GASTROINTESTINAL HAEMORRHAGE [None]
  - HAEMOGLOBIN DECREASED [None]
  - MELAENA [None]
